FAERS Safety Report 20110905 (Version 2)
Quarter: 2022Q1

REPORT INFORMATION
  Report Type: Spontaneous
  Country: US (occurrence: US)
  Receive Date: 20211124
  Receipt Date: 20220118
  Transmission Date: 20220423
  Serious: No
  Sender: FDA-Public Use
  Company Number: US-AMGEN-USASP2021184649

PATIENT
  Sex: Female

DRUGS (1)
  1. REPATHA [Suspect]
     Active Substance: EVOLOCUMAB
     Indication: Cerebrovascular disorder
     Dosage: UNK UNK, Q2WK
     Route: 065

REACTIONS (1)
  - Fatigue [Recovered/Resolved]
